FAERS Safety Report 12188294 (Version 1)
Quarter: 2016Q1

REPORT INFORMATION
  Report Type: Spontaneous
  Country: GB (occurrence: GB)
  Receive Date: 20160317
  Receipt Date: 20160317
  Transmission Date: 20160526
  Serious: Yes (Other)
  Sender: FDA-Public Use
  Company Number: GB-FERRINGPH-2016FE01171

PATIENT

DRUGS (1)
  1. PICOLAX [Suspect]
     Active Substance: CITRIC ACID MONOHYDRATE\MAGNESIUM OXIDE\SODIUM PICOSULFATE
     Indication: PRODUCT USED FOR UNKNOWN INDICATION
     Dosage: ONCE/TWICE DAILY
     Dates: start: 2015

REACTIONS (5)
  - Teeth brittle [Unknown]
  - Burning sensation [Unknown]
  - Cardiac fibrillation [Unknown]
  - Tooth loss [Unknown]
  - Inappropriate schedule of drug administration [Unknown]
